FAERS Safety Report 5386611-8 (Version None)
Quarter: 2007Q3

REPORT INFORMATION
  Report Type: 
  Country: None (occurrence: None)
  Receive Date: 20070713
  Receipt Date: 20070706
  Transmission Date: 20080115
  Serious: Yes (Hospitalization)
  Sender: FDA-Public Use
  Company Number: TR-AVENTIS-200716130GDDC

PATIENT
  Sex: Female
  Weight: 75 kg

DRUGS (2)
  1. LANTUS [Suspect]
     Route: 058
     Dates: end: 20070101
  2. AUTOPEN INSULIN INJECTION PEN [Suspect]

REACTIONS (3)
  - HYPOGLYCAEMIA [None]
  - PYREXIA [None]
  - URINARY TRACT INFECTION [None]
